FAERS Safety Report 9514887 (Version 2)
Quarter: 2014Q1

REPORT INFORMATION
  Report Type: Spontaneous
  Country: US (occurrence: None)
  Receive Date: 20130305
  Receipt Date: 20140306
  Transmission Date: 20141002
  Serious: Yes (Hospitalization)
  Sender: FDA-Public Use
  Company Number: 163-21880-12111983

PATIENT
  Age: 89 Year
  Sex: Male
  Weight: 71.67 kg

DRUGS (2)
  1. REVLIMID [Suspect]
     Indication: PLASMA CELL MYELOMA
     Route: 048
     Dates: start: 20120515
  2. ZOMETA (ZOLEDRONIC ACID) [Concomitant]
     Dosage: 1 IN 1 D
     Route: 048

REACTIONS (2)
  - Renal impairment [None]
  - Hypokalaemia [None]
